FAERS Safety Report 5004057-9 (Version None)
Quarter: 2006Q2

REPORT INFORMATION
  Report Type: 
  Country: None (occurrence: None)
  Receive Date: 20060515
  Receipt Date: 20060515
  Transmission Date: 20061013
  Serious: Yes (Death)
  Sender: FDA-Public Use
  Company Number: None

PATIENT
  Age: 86 Year
  Sex: Female
  Weight: 88.3 kg

DRUGS (7)
  1. ALTEPLASE 1 GM [Suspect]
     Indication: ISCHAEMIC STROKE
     Dosage: 71.2 MG 1 TIME IV
     Route: 042
     Dates: start: 20060419, end: 20060419
  2. KLOR-CON [Concomitant]
  3. AMITRIPTYLINE HCL [Concomitant]
  4. LEVOXYL [Concomitant]
  5. NIFEDIPINE [Concomitant]
  6. AMBIEN [Concomitant]
  7. LASIX [Concomitant]

REACTIONS (11)
  - APNOEA [None]
  - ATRIAL FIBRILLATION [None]
  - BLOOD PRESSURE INCREASED [None]
  - BRAIN OEDEMA [None]
  - DISEASE PROGRESSION [None]
  - HAEMORRHAGE INTRACRANIAL [None]
  - HAEMORRHAGIC STROKE [None]
  - LOSS OF CONSCIOUSNESS [None]
  - PNEUMONIA ASPIRATION [None]
  - PULSE ABSENT [None]
  - RESPIRATORY DISTRESS [None]
